FAERS Safety Report 5874159-3 (Version None)
Quarter: 2008Q3

REPORT INFORMATION
  Report Type: 
  Country: None (occurrence: None)
  Receive Date: 20080905
  Receipt Date: 20080905
  Transmission Date: 20090109
  Serious: Yes (Other)
  Sender: FDA-Public Use
  Company Number: None

PATIENT
  Age: 39 Year
  Sex: Female
  Weight: 63.5036 kg

DRUGS (1)
  1. COPAXONE [Suspect]
     Indication: MULTIPLE SCLEROSIS
     Dosage: 1 PREFILLED SYRINGE DAILY SQ
     Route: 058
     Dates: start: 20080812, end: 20080820

REACTIONS (10)
  - ASTHENIA [None]
  - BACK PAIN [None]
  - CHILLS [None]
  - DISTURBANCE IN ATTENTION [None]
  - FATIGUE [None]
  - IRRITABILITY [None]
  - MYALGIA [None]
  - ORAL HERPES [None]
  - PYREXIA [None]
  - TREMOR [None]
